FAERS Safety Report 7380486-3 (Version None)
Quarter: 2011Q1

REPORT INFORMATION
  Report Type: 
  Country: None (occurrence: None)
  Receive Date: 20110329
  Receipt Date: 20091226
  Transmission Date: 20110831
  Serious: Yes (Death, Hospitalization, Other)
  Sender: FDA-Public Use
  Company Number: US-BAYER-200943301NA

PATIENT
  Sex: Male
  Weight: 117.91 kg

DRUGS (28)
  1. CARDIZEM [Concomitant]
     Dosage: 90 MG, QD
     Route: 048
  2. LASIX [Concomitant]
     Dosage: 80 MG, BID
     Route: 048
  3. AZMACORT [Concomitant]
     Dosage: 6 PUFFS/TWICE DAILY (INHALE)
  4. LIDOCAINE [Concomitant]
     Dosage: UNK
     Route: 042
     Dates: start: 19990330, end: 19990330
  5. NITROGLYCERIN [Concomitant]
     Dosage: UNK
     Route: 042
     Dates: start: 19990330, end: 19990330
  6. PROTAMINE SULFATE [Concomitant]
     Dosage: UNK
     Route: 042
     Dates: start: 19990330, end: 19990330
  7. PRILOSEC [Concomitant]
     Dosage: 20 MG, QD
     Route: 048
  8. LASIX [Concomitant]
     Dosage: UNK
     Route: 042
     Dates: start: 19990330, end: 19990330
  9. ZEMURON [Concomitant]
     Dosage: UNK
     Route: 042
     Dates: start: 19990330, end: 19990330
  10. ARTHROTEC [Concomitant]
     Dosage: 75 MG, BID
     Route: 048
  11. ALLOPURINOL [Concomitant]
     Dosage: 30 MG, QD
     Route: 048
  12. FENTANYL [Concomitant]
     Dosage: UNK
     Route: 042
     Dates: start: 19990330, end: 19990330
  13. CEFAZOLIN [Concomitant]
     Dosage: UNK
     Route: 042
     Dates: start: 19990330, end: 19990330
  14. HEPARIN SODIUM [Concomitant]
     Dosage: UNK
     Route: 042
     Dates: start: 19990330, end: 19990330
  15. DOPAMINE [Concomitant]
     Dosage: UNK
     Route: 042
     Dates: start: 19990330, end: 19990330
  16. SODIUM CHLORIDE [Concomitant]
     Dosage: UNK
     Route: 042
     Dates: start: 19990330, end: 19990330
  17. PRAVACHOL [Concomitant]
     Dosage: 40 MG, QD
     Route: 048
  18. AMICAR [Concomitant]
     Dosage: 5 G IN 100 NORMAL SALINE, UNK
     Route: 042
     Dates: start: 19990330, end: 19990330
  19. PAVULON [Concomitant]
     Dosage: UNK
     Route: 042
     Dates: start: 19990330, end: 19990330
  20. EPINEPHRINE [Concomitant]
     Dosage: UNK
     Route: 042
     Dates: start: 19990330, end: 19990330
  21. K-TAB [Concomitant]
     Dosage: 20 MEQ, FOUR TIMES DAILY
     Route: 048
  22. CALCIUM CHLORIDE [Concomitant]
     Dosage: UNK
     Route: 042
     Dates: start: 19990330, end: 19990330
  23. POTASSIUM CHLORIDE [Concomitant]
     Dosage: UNK
     Route: 042
     Dates: start: 19990330, end: 19990330
  24. TRASYLOL [Suspect]
     Indication: CORONARY ARTERY BYPASS
     Dosage: UNK
     Route: 042
     Dates: start: 19990330
  25. VERSED [Concomitant]
     Dosage: UNK
     Route: 042
     Dates: start: 19990330, end: 19990330
  26. ETOMIDATE [Concomitant]
     Dosage: UNK
     Route: 042
     Dates: start: 19990330, end: 19990330
  27. NEO-SYNEPHRINOL [Concomitant]
     Dosage: UNK
     Route: 042
     Dates: start: 19990330, end: 19990330
  28. SOLU-MEDROL [Concomitant]
     Dosage: UNK
     Route: 042
     Dates: start: 19990330, end: 19990330

REACTIONS (7)
  - INJURY [None]
  - DEATH [None]
  - UNEVALUABLE EVENT [None]
  - RENAL FAILURE ACUTE [None]
  - RENAL INJURY [None]
  - RENAL FAILURE [None]
  - PAIN [None]
